FAERS Safety Report 6298661-8 (Version None)
Quarter: 2009Q3

REPORT INFORMATION
  Report Type: 
  Country: None (occurrence: None)
  Receive Date: 20090804
  Receipt Date: 20090721
  Transmission Date: 20100115
  Serious: Yes (Other)
  Sender: FDA-Public Use
  Company Number: 236427K09USA

PATIENT
  Age: 51 Year
  Sex: Female
  Weight: 84 kg

DRUGS (10)
  1. REBIF [Suspect]
     Indication: MULTIPLE SCLEROSIS
     Dosage: 44 MCG, 3 IN 1 WEEKS, SUBCUTANEOUS
     Route: 058
     Dates: start: 20071022, end: 20090429
  2. ADVAIR HFA [Concomitant]
  3. PROAIR (ALL OTHER THERAPEUTIC PRODUCTS) [Concomitant]
  4. ALBUTEROL (SALBUTAMOL /00139501/) [Concomitant]
  5. LYRICA [Concomitant]
  6. LEXAPRO [Concomitant]
  7. MORPHINE [Concomitant]
  8. TYLENOL WITH CODEINE (PANADEINE CO) [Concomitant]
  9. XANAX [Concomitant]
  10. TRAZODONE HCL [Concomitant]

REACTIONS (8)
  - ANXIETY [None]
  - CHEST DISCOMFORT [None]
  - DYSPNOEA [None]
  - ECONOMIC PROBLEM [None]
  - LUNG NEOPLASM [None]
  - OEDEMA PERIPHERAL [None]
  - PAIN IN EXTREMITY [None]
  - SICK RELATIVE [None]
